FAERS Safety Report 16563294 (Version 1)
Quarter: 2019Q3

REPORT INFORMATION
  Report Type: Report from Study
  Country: BR (occurrence: BR)
  Receive Date: 20190711
  Receipt Date: 20190711
  Transmission Date: 20191004
  Serious: Yes (Other)
  Sender: FDA-Public Use
  Company Number: PHHY2017BR163655

PATIENT
  Age: 42 Year
  Sex: Male
  Weight: 68 kg

DRUGS (8)
  1. COSENTYX [Suspect]
     Active Substance: SECUKINUMAB
     Dosage: UNK
     Route: 065
     Dates: start: 20190430
  2. COSENTYX [Suspect]
     Active Substance: SECUKINUMAB
     Dosage: 150 MG, UNK (ON SUNDAYS AND THURSDAY)
     Route: 058
     Dates: start: 20171015
  3. COSENTYX [Suspect]
     Active Substance: SECUKINUMAB
     Indication: ANKYLOSING SPONDYLITIS
     Dosage: 300 MG, UNK
     Route: 058
     Dates: start: 20171005
  4. COSENTYX [Suspect]
     Active Substance: SECUKINUMAB
     Dosage: 150 MG, UNK (ON SUNDAYS AND THURSDAY)
     Route: 058
     Dates: start: 20171022
  5. COSENTYX [Suspect]
     Active Substance: SECUKINUMAB
     Dosage: 150 MG, UNK (ON SUNDAYS AND THURSDAY)
     Route: 058
     Dates: start: 20171026
  6. COSENTYX [Suspect]
     Active Substance: SECUKINUMAB
     Indication: PSORIASIS
     Dosage: 150 MG, UNK (ON SUNDAYS AND THURSDAY)
     Route: 058
     Dates: start: 20171012
  7. COSENTYX [Suspect]
     Active Substance: SECUKINUMAB
     Dosage: 150 MG, UNK (ON SUNDAYS AND THURSDAY)
     Route: 058
     Dates: start: 20171019
  8. COSENTYX [Suspect]
     Active Substance: SECUKINUMAB
     Dosage: 150 MG, UNK (ON SUNDAYS AND THURSDAY)
     Route: 058
     Dates: start: 20171029

REACTIONS (6)
  - Product prescribing error [Unknown]
  - Depression [Unknown]
  - Inappropriate schedule of product administration [Unknown]
  - Uveitis [Not Recovered/Not Resolved]
  - Malaise [Not Recovered/Not Resolved]
  - Hypersensitivity [Unknown]

NARRATIVE: CASE EVENT DATE: 201905
